FAERS Safety Report 24041918 (Version 1)
Quarter: 2024Q3

REPORT INFORMATION
  Report Type: Spontaneous
  Country: US (occurrence: US)
  Receive Date: 20240702
  Receipt Date: 20240702
  Transmission Date: 20241016
  Serious: Yes (Other)
  Sender: FRESENIUS KABI
  Company Number: US-FreseniusKabi-FK202410123

PATIENT
  Age: 32 Year
  Sex: Female
  Weight: 73.9 kg

DRUGS (3)
  1. SMOFLIPID [Suspect]
     Active Substance: FISH OIL\MEDIUM-CHAIN TRIGLYCERIDES\OLIVE OIL\SOYBEAN OIL
     Indication: Parenteral nutrition
     Dosage: FORM OF ADMIN: INJECTABLE EMULSION?DAILY
  2. SMOFLIPID [Suspect]
     Active Substance: FISH OIL\MEDIUM-CHAIN TRIGLYCERIDES\OLIVE OIL\SOYBEAN OIL
     Dosage: FORM OF ADMIN: INJECTABLE EMULSION?DECREASED FROM DAILY TO 3X/WEEK
  3. OCTREOTIDE ACETATE [Suspect]
     Active Substance: OCTREOTIDE ACETATE
     Indication: Parenteral nutrition
     Dosage: FORM OF ADMIN: INJECTION

REACTIONS (1)
  - Pancreatitis [Unknown]
